FAERS Safety Report 13114216 (Version 3)
Quarter: 2017Q1

REPORT INFORMATION
  Report Type: Spontaneous
  Country: US (occurrence: US)
  Receive Date: 20170113
  Receipt Date: 20170317
  Transmission Date: 20170428
  Serious: No
  Sender: FDA-Public Use
  Company Number: US-PFIZER INC-2017016392

PATIENT
  Age: 74 Year
  Sex: Female

DRUGS (1)
  1. PREMARIN [Suspect]
     Active Substance: ESTROGENS, CONJUGATED
     Indication: VULVOVAGINAL DRYNESS
     Dosage: 2 MG, WEEKLY
     Route: 067
     Dates: start: 2015

REACTIONS (2)
  - Asthenia [Unknown]
  - Malaise [Unknown]
